FAERS Safety Report 13752843 (Version 1)
Quarter: 2017Q3

REPORT INFORMATION
  Report Type: Spontaneous
  Country: US (occurrence: US)
  Receive Date: 20170713
  Receipt Date: 20170713
  Transmission Date: 20171127
  Serious: Yes (Hospitalization, Disabling, Other)
  Sender: FDA-Public Use
  Company Number: None

PATIENT
  Age: 59 Year
  Sex: Female
  Weight: 91.8 kg

DRUGS (6)
  1. METOPROLOL. [Concomitant]
     Active Substance: METOPROLOL
  2. CLONAZEPAM. [Suspect]
     Active Substance: CLONAZEPAM
     Indication: ANXIETY
     Dosage: ?          OTHER STRENGTH:MG;QUANTITY:120 TABLET(S);?
     Route: 048
     Dates: start: 20000901, end: 20170713
  3. TYLENOL [Concomitant]
     Active Substance: ACETAMINOPHEN
  4. CLONAZEPAM. [Suspect]
     Active Substance: CLONAZEPAM
     Indication: PANIC ATTACK
     Dosage: ?          OTHER STRENGTH:MG;QUANTITY:120 TABLET(S);?
     Route: 048
     Dates: start: 20000901, end: 20170713
  5. MELOXICAM. [Concomitant]
     Active Substance: MELOXICAM
  6. PRILOSEC [Concomitant]
     Active Substance: OMEPRAZOLE MAGNESIUM

REACTIONS (9)
  - Vertigo [None]
  - Arthropathy [None]
  - Diverticulum [None]
  - Gastric disorder [None]
  - Dizziness [None]
  - Gastrointestinal hypomotility [None]
  - Electrocardiogram abnormal [None]
  - Supraventricular tachycardia [None]
  - Feeling abnormal [None]

NARRATIVE: CASE EVENT DATE: 20140305
